FAERS Safety Report 9344183 (Version 2)
Quarter: 2013Q3

REPORT INFORMATION
  Report Type: Spontaneous
  Country: NL (occurrence: NL)
  Receive Date: 20130612
  Receipt Date: 20130703
  Transmission Date: 20140515
  Serious: Yes (Other)
  Sender: FDA-Public Use
  Company Number: NL-PFIZER INC-HQWYE385403AUG07

PATIENT
  Age: 66 Year
  Sex: Female
  Weight: 50 kg

DRUGS (6)
  1. AMOXICILLIN TRIHYDRATE [Suspect]
     Indication: HELICOBACTER INFECTION
     Dosage: 1000 MG, 2X/DAY
     Route: 048
     Dates: start: 20070309, end: 20070314
  2. CLARITHROMYCIN [Suspect]
     Indication: HELICOBACTER INFECTION
     Dosage: 500 MG, 2X/DAY
     Route: 048
     Dates: start: 20070309, end: 20070314
  3. PANTOPRAZOLE [Suspect]
     Indication: HELICOBACTER INFECTION
     Dosage: 40 MG, 2X/DAY
     Route: 048
     Dates: start: 20070309, end: 20070314
  4. RANITIDINE [Concomitant]
     Dosage: 75 MG, UNK
     Route: 048
  5. VERAPAMIL [Concomitant]
     Indication: HYPERTENSION
     Dosage: 40 MG, 4X/DAY
     Route: 048
  6. ACESISTEM [Concomitant]
     Dosage: UNK

REACTIONS (2)
  - Bronchospasm [Recovered/Resolved]
  - Angioedema [Recovered/Resolved]
